FAERS Safety Report 16611602 (Version 1)
Quarter: 2019Q3

REPORT INFORMATION
  Report Type: Spontaneous
  Country: US (occurrence: US)
  Receive Date: 20190722
  Receipt Date: 20190722
  Transmission Date: 20191004
  Serious: No
  Sender: FDA-Public Use
  Company Number: US-ALLERGAN-1922394US

PATIENT
  Age: 90 Year
  Sex: Male

DRUGS (16)
  1. NITROSTAT [Concomitant]
     Active Substance: NITROGLYCERIN
  2. LOVENOX [Concomitant]
     Active Substance: ENOXAPARIN SODIUM
  3. TRELSTAR [Suspect]
     Active Substance: TRIPTORELIN PAMOATE
     Indication: PROSTATE CANCER
     Dosage: 22.5 MG, SINGLE
     Route: 030
     Dates: start: 20190607, end: 20190607
  4. TAMSULOSIN [Concomitant]
     Active Substance: TAMSULOSIN
  5. LEVOTHYROXINE. [Concomitant]
     Active Substance: LEVOTHYROXINE
  6. OMEPRAZOLE. [Concomitant]
     Active Substance: OMEPRAZOLE
  7. ASPIRIN. [Concomitant]
     Active Substance: ASPIRIN
  8. TRELSTAR [Suspect]
     Active Substance: TRIPTORELIN PAMOATE
     Dosage: 22.5 MG, SINGLE
     Route: 030
     Dates: start: 20190524, end: 20190524
  9. VITAMIN D [Concomitant]
     Active Substance: VITAMIN D NOS
  10. METOPROLOL. [Concomitant]
     Active Substance: METOPROLOL
  11. IRON [Concomitant]
     Active Substance: IRON
  12. LOSARTAN. [Concomitant]
     Active Substance: LOSARTAN
  13. OXYCODONE [Concomitant]
     Active Substance: OXYCODONE
  14. TRAMADOL. [Concomitant]
     Active Substance: TRAMADOL
  15. SIMVASTATIN. [Concomitant]
     Active Substance: SIMVASTATIN
  16. CALCIUM [Concomitant]
     Active Substance: CALCIUM

REACTIONS (4)
  - Product solubility abnormal [Unknown]
  - Needle issue [Unknown]
  - Incorrect dose administered [Unknown]
  - Product use complaint [Unknown]

NARRATIVE: CASE EVENT DATE: 20190524
